FAERS Safety Report 25886579 (Version 1)
Quarter: 2025Q4

REPORT INFORMATION
  Report Type: Spontaneous
  Country: US (occurrence: US)
  Receive Date: 20251006
  Receipt Date: 20251006
  Transmission Date: 20260118
  Serious: Yes (Death, Other)
  Sender: REGENERON
  Company Number: US-REGENERON PHARMACEUTICALS, INC.-2025-156999

PATIENT
  Age: 80 Year
  Sex: Male

DRUGS (2)
  1. LIBTAYO [Suspect]
     Active Substance: CEMIPLIMAB-RWLC
     Indication: Non-small cell lung cancer
     Dosage: 3 CYCLES
  2. CABAZITAXEL [Concomitant]
     Active Substance: CABAZITAXEL
     Indication: Chemotherapy
     Dosage: UNK

REACTIONS (2)
  - Death [Fatal]
  - Pneumothorax [Unknown]
